FAERS Safety Report 7676367-8 (Version None)
Quarter: 2011Q3

REPORT INFORMATION
  Report Type: 
  Country: None (occurrence: None)
  Receive Date: 20110811
  Receipt Date: 20110809
  Transmission Date: 20111222
  Serious: No
  Sender: FDA-Public Use
  Company Number: US-PFIZER INC-2011183146

PATIENT
  Sex: Female
  Weight: 59.864 kg

DRUGS (1)
  1. ADVIL LIQUI-GELS [Suspect]
     Indication: PAIN
     Dosage: UNK, 2X/DAY
     Route: 048
     Dates: start: 20110101, end: 20110801

REACTIONS (1)
  - URTICARIA [None]
